FAERS Safety Report 14534310 (Version 1)
Quarter: 2018Q1

REPORT INFORMATION
  Report Type: Spontaneous
  Country: US (occurrence: US)
  Receive Date: 20180214
  Receipt Date: 20180214
  Transmission Date: 20180509
  Serious: No
  Sender: FDA-Public Use
  Company Number: None

PATIENT
  Age: 82 Year
  Sex: Female

DRUGS (1)
  1. PROLIA [Suspect]
     Active Substance: DENOSUMAB
     Indication: OSTEOPOROSIS
     Dosage: ONCE EVERY 6 MONTHS
     Route: 058
     Dates: start: 20170814

REACTIONS (1)
  - Left ventricular failure [None]

NARRATIVE: CASE EVENT DATE: 20180115
